FAERS Safety Report 4829085-5 (Version None)
Quarter: 2005Q4

REPORT INFORMATION
  Report Type: 
  Country: None (occurrence: None)
  Receive Date: 20051027
  Receipt Date: 20041108
  Transmission Date: 20060501
  Serious: Yes (Hospitalization)
  Sender: FDA-Public Use
  Company Number: HQWYE325309NOV04

PATIENT
  Age: 52 Year
  Sex: Female
  Weight: 75.36 kg

DRUGS (3)
  1. PREMARIN [Suspect]
     Indication: HORMONE REPLACEMENT THERAPY
     Dosage: SEE IMAGE
     Route: 048
     Dates: start: 20031101, end: 20040101
  2. PREMARIN [Suspect]
     Indication: HORMONE REPLACEMENT THERAPY
     Dosage: SEE IMAGE
     Route: 048
     Dates: start: 20040401
  3. LEVOXYL [Concomitant]

REACTIONS (8)
  - ALOPECIA [None]
  - ARTHRALGIA [None]
  - DIARRHOEA [None]
  - GALLBLADDER DISORDER [None]
  - GASTROINTESTINAL DISORDER [None]
  - HUNGER [None]
  - THYROID NEOPLASM [None]
  - WEIGHT DECREASED [None]
